FAERS Safety Report 9754793 (Version 1)
Quarter: 2013Q4

REPORT INFORMATION
  Report Type: Spontaneous
  Country: US (occurrence: US)
  Receive Date: 20131213
  Receipt Date: 20131213
  Transmission Date: 20140711
  Serious: No
  Sender: FDA-Public Use
  Company Number: US-GLAXOSMITHKLINE-A1005994A

PATIENT
  Age: 35 Year
  Sex: Female

DRUGS (2)
  1. NICODERM CQ CLEAR 21MG [Suspect]
     Indication: EX-TOBACCO USER
     Dates: start: 201210, end: 20121217
  2. NICODERM CQ CLEAR 14MG [Suspect]
     Indication: EX-TOBACCO USER
     Dates: start: 20121218

REACTIONS (7)
  - Euphoric mood [Not Recovered/Not Resolved]
  - Thinking abnormal [Not Recovered/Not Resolved]
  - Nervousness [Not Recovered/Not Resolved]
  - Depressed mood [Not Recovered/Not Resolved]
  - Emotional disorder [Not Recovered/Not Resolved]
  - Drug administration error [Not Recovered/Not Resolved]
  - Feeling abnormal [Not Recovered/Not Resolved]
